FAERS Safety Report 11859408 (Version 2)
Quarter: 2016Q1

REPORT INFORMATION
  Report Type: Spontaneous
  Country: IT (occurrence: IT)
  Receive Date: 20151221
  Receipt Date: 20160219
  Transmission Date: 20160526
  Serious: Yes (Hospitalization, Other)
  Sender: FDA-Public Use
  Company Number: IT-PERNIX THERAPEUTICS-2015PT000259

PATIENT
  Age: 81 Year
  Sex: Female

DRUGS (4)
  1. FUROSEMIDE. [Concomitant]
     Active Substance: FUROSEMIDE
     Dosage: UNK TABLET, UNK
     Dates: start: 2013
  2. COUMADIN [Concomitant]
     Active Substance: WARFARIN SODIUM
     Dosage: 5 MG, UNK
     Dates: start: 2013
  3. DIGITALIS [Concomitant]
     Active Substance: DIGITALIS
     Dosage: UNK
  4. CEDAX [Suspect]
     Active Substance: CEFTIBUTEN DIHYDRATE
     Indication: ANTIBIOTIC THERAPY
     Dosage: 400 MG, DAILY
     Route: 048
     Dates: start: 20151119, end: 20151125

REACTIONS (1)
  - Stevens-Johnson syndrome [Recovering/Resolving]

NARRATIVE: CASE EVENT DATE: 20151125
